FAERS Safety Report 4397694-6 (Version None)
Quarter: 2004Q3

REPORT INFORMATION
  Report Type: 
  Country: None (occurrence: None)
  Receive Date: 20040713
  Receipt Date: 20040628
  Transmission Date: 20050211
  Serious: Yes (Death, Hospitalization, Other)
  Sender: FDA-Public Use
  Company Number: 2003176364US

PATIENT
  Age: 47 Year
  Sex: Female

DRUGS (13)
  1. DELTASONE [Suspect]
     Indication: RHEUMATOID ARTHRITIS
     Dosage: 2.5 MG, QD, ORAL; SEE IMAGE
     Route: 048
  2. INSULIN HUMULIN-N (INSULIN) [Concomitant]
  3. DARVOCET-N 100 [Concomitant]
  4. ZOLOFT [Concomitant]
  5. PEPCID [Concomitant]
  6. CIPROFLOXACIN [Concomitant]
  7. HUMALOG [Concomitant]
  8. CELEBREX [Concomitant]
  9. ORUVAIL [Concomitant]
  10. MIACALCIN [Concomitant]
  11. AVANDIA [Concomitant]
  12. MOTRIN [Concomitant]
  13. ADVIL [Concomitant]

REACTIONS (20)
  - ACIDOSIS [None]
  - ANAEMIA [None]
  - AZOTAEMIA [None]
  - BACTERIAL SEPSIS [None]
  - COAGULOPATHY [None]
  - COLITIS ISCHAEMIC [None]
  - CONDITION AGGRAVATED [None]
  - DIABETES MELLITUS INADEQUATE CONTROL [None]
  - DIALYSIS [None]
  - DISSEMINATED INTRAVASCULAR COAGULATION [None]
  - DUODENAL ULCER PERFORATION [None]
  - DYSPEPSIA [None]
  - GASTRIC ULCER PERFORATION [None]
  - GASTROINTESTINAL HAEMORRHAGE [None]
  - HYPERTENSION [None]
  - HYPOVOLAEMIA [None]
  - MELAENA [None]
  - NAUSEA [None]
  - SEPTIC SHOCK [None]
  - TOXIC EPIDERMAL NECROLYSIS [None]
